FAERS Safety Report 9899374 (Version 1)
Quarter: 2014Q1

REPORT INFORMATION
  Report Type: Spontaneous
  Country: BR (occurrence: BR)
  Receive Date: 20140214
  Receipt Date: 20140214
  Transmission Date: 20141002
  Serious: Yes (Hospitalization, Disabling)
  Sender: FDA-Public Use
  Company Number: BR-MYLANLABS-2014S1002570

PATIENT
  Age: 18 Year
  Sex: Male

DRUGS (3)
  1. ISOTRETINOIN [Suspect]
     Indication: ACNE FULMINANS
     Dosage: 40MG/DAY (0.67MG/KG/DAY)
     Route: 048
  2. DAPSONE [Concomitant]
     Indication: ACNE FULMINANS
     Dosage: 100MG/DAY
     Route: 065
  3. MINOCYCLINE [Concomitant]
     Indication: ACNE FULMINANS
     Dosage: 100MG/DAY
     Route: 065

REACTIONS (1)
  - Sacroiliitis [Recovering/Resolving]
